FAERS Safety Report 10785501 (Version 1)
Quarter: 2015Q1

REPORT INFORMATION
  Report Type: Spontaneous
  Country: JP (occurrence: None)
  Receive Date: 20150209
  Receipt Date: 20150209
  Transmission Date: 20150721
  Serious: Yes (Hospitalization)
  Sender: FDA-Public Use
  Company Number: JP2015JPN011185

PATIENT
  Age: 88 Year
  Sex: Female

DRUGS (3)
  1. TAGAMET (CIMETIDINE) [Concomitant]
  2. PAXIL CR [Suspect]
     Active Substance: PAROXETINE HYDROCHLORIDE
     Indication: DEPRESSED MOOD
     Route: 048
  3. SULPIRIDE [Concomitant]
     Active Substance: SULPIRIDE

REACTIONS (8)
  - Pleural effusion [None]
  - Feelings of worthlessness [None]
  - Depressed mood [None]
  - Electrolyte imbalance [None]
  - Drug withdrawal syndrome [None]
  - Apathy [None]
  - Abulia [None]
  - Cardiac failure [None]

NARRATIVE: CASE EVENT DATE: 20150127
